FAERS Safety Report 10886650 (Version 1)
Quarter: 2015Q1

REPORT INFORMATION
  Report Type: Spontaneous
  Country: US (occurrence: US)
  Receive Date: 20150304
  Receipt Date: 20150304
  Transmission Date: 20150721
  Serious: No
  Sender: FDA-Public Use
  Company Number: US-GLAXOSMITHKLINE-US2014GSK053534

PATIENT
  Sex: Female

DRUGS (1)
  1. UP AND UP NICOTINE [Suspect]
     Active Substance: NICOTINE
     Dosage: UNK
     Route: 002
     Dates: start: 201404

REACTIONS (1)
  - Oral discomfort [Unknown]

NARRATIVE: CASE EVENT DATE: 201404
